FAERS Safety Report 25991000 (Version 1)
Quarter: 2025Q4

REPORT INFORMATION
  Report Type: Report from Study
  Country: US (occurrence: US)
  Receive Date: 20251103
  Receipt Date: 20251103
  Transmission Date: 20260117
  Serious: Yes (Death)
  Sender: EISAI
  Company Number: US-Eisai-EC-2025-199337

PATIENT
  Age: 76 Year
  Sex: Female

DRUGS (1)
  1. LEQEMBI [Suspect]
     Active Substance: LECANEMAB-IRMB
     Indication: Cognitive disorder
     Dosage: DOSE AND FREQUENCY UNKNOWN
     Route: 042
     Dates: start: 20240425, end: 20251028

REACTIONS (1)
  - Death [Fatal]

NARRATIVE: CASE EVENT DATE: 20251029
